FAERS Safety Report 9234980 (Version 2)
Quarter: 2013Q2

REPORT INFORMATION
  Report Type: Report from Study
  Country: US (occurrence: US)
  Receive Date: 20130416
  Receipt Date: 20130530
  Transmission Date: 20140414
  Serious: No
  Sender: FDA-Public Use
  Company Number: US-VERTEX PHARMACEUTICALS INC.-2013-004849

PATIENT
  Sex: Male

DRUGS (9)
  1. VX-950 (TELAPREVIR) [Suspect]
     Indication: HEPATITIS C
     Dosage: 750 MG, TID
     Route: 048
  2. RIBAPAK [Suspect]
     Indication: HEPATITIS C
     Dosage: 600 / DAY
  3. PEGASYS [Suspect]
     Indication: HEPATITIS C
  4. LISINOPRIL [Concomitant]
     Dosage: 10 MG, UNK
  5. LEVOTHYROXIN [Concomitant]
     Dosage: 100 ?G, UNK
  6. AMLODIPINE [Concomitant]
     Dosage: 10 MG, UNK
  7. MULTICAPS [Concomitant]
  8. VITAMIN B12 [Concomitant]
     Dosage: 100 ?G, UNK
  9. VITAMIN C [Concomitant]
     Dosage: 500 MG, UNK

REACTIONS (1)
  - Diarrhoea [Recovered/Resolved]
